FAERS Safety Report 13123466 (Version 5)
Quarter: 2017Q1

REPORT INFORMATION
  Report Type: Spontaneous
  Country: US (occurrence: US)
  Receive Date: 20170117
  Receipt Date: 20170302
  Transmission Date: 20170428
  Serious: Yes (Hospitalization)
  Sender: FDA-Public Use
  Company Number: US-ACTELION-A-NJ2017-148197

PATIENT
  Age: 19 Year
  Sex: Female
  Weight: 56.24 kg

DRUGS (4)
  1. ADEMPAS [Concomitant]
     Active Substance: RIOCIGUAT
  2. LETAIRIS [Concomitant]
     Active Substance: AMBRISENTAN
  3. VELETRI [Suspect]
     Active Substance: EPOPROSTENOL
     Indication: PULMONARY ARTERIAL HYPERTENSION
     Dosage: 75 NG/KG, PER MIN
     Route: 042
     Dates: start: 20170106
  4. COUMADIN [Concomitant]
     Active Substance: WARFARIN SODIUM

REACTIONS (5)
  - Rash [Unknown]
  - Hypoxia [Unknown]
  - Dizziness [Unknown]
  - Pulmonary hypertension [Unknown]
  - Pneumonia [Unknown]
